FAERS Safety Report 18700368 (Version 2)
Quarter: 2021Q1

REPORT INFORMATION
  Report Type: Report from Study
  Country: BR (occurrence: BR)
  Receive Date: 20210105
  Receipt Date: 20210209
  Transmission Date: 20210419
  Serious: Yes (Other)
  Sender: FDA-Public Use
  Company Number: NVSC2020BR272109

PATIENT
  Age: 66 Year
  Sex: Female
  Weight: 98 kg

DRUGS (8)
  1. COSENTYX [Suspect]
     Active Substance: SECUKINUMAB
     Dosage: 300 MG, QMO
     Route: 058
     Dates: start: 20191216, end: 20201113
  2. FUROSEMIDE. [Concomitant]
     Active Substance: FUROSEMIDE
     Indication: HYPERTENSION
     Dosage: 40 MG, QD  (OVER 10 YEARS AGO)
     Route: 048
  3. COSENTYX [Suspect]
     Active Substance: SECUKINUMAB
     Indication: PSORIATIC ARTHROPATHY
     Dosage: 300 MG, UNKNOWN
     Route: 058
     Dates: start: 20191216
  4. ATENOL [Concomitant]
     Active Substance: ATENOLOL
     Indication: HYPERTENSION
     Dosage: 50 MG, QD (OVER 10 YEARS AGO)
     Route: 048
  5. NEO FEDIPINA [Concomitant]
     Indication: HYPERTENSION
     Dosage: 20 MG, QD (OVER 10 YEARS AGO)
     Route: 048
  6. COSENTYX [Suspect]
     Active Substance: SECUKINUMAB
     Indication: PSORIASIS
     Dosage: 300 MG, QMO
     Route: 058
     Dates: start: 20191216, end: 20201113
  7. COSENTYX [Suspect]
     Active Substance: SECUKINUMAB
     Dosage: 300 MG, QMO
     Route: 058
     Dates: start: 20191216, end: 20201113
  8. GLIFAGE [Concomitant]
     Active Substance: METFORMIN HYDROCHLORIDE
     Indication: DIABETES MELLITUS
     Dosage: 500 MG, BID (OVER 10 YEARS AGO)
     Route: 048

REACTIONS (15)
  - Psoriasis [Recovering/Resolving]
  - Rash macular [Unknown]
  - Wound complication [Unknown]
  - Skin irritation [Recovering/Resolving]
  - Pain in extremity [Recovering/Resolving]
  - Drug ineffective [Not Recovered/Not Resolved]
  - Erythema [Recovering/Resolving]
  - Erythema nodosum [Recovering/Resolving]
  - Acne [Recovering/Resolving]
  - Skin fissures [Recovering/Resolving]
  - Wound [Not Recovered/Not Resolved]
  - Memory impairment [Unknown]
  - Drug ineffective [Recovered/Resolved]
  - Asthenia [Recovering/Resolving]
  - Nervousness [Not Recovered/Not Resolved]

NARRATIVE: CASE EVENT DATE: 20200924
